FAERS Safety Report 4549403-5 (Version None)
Quarter: 2005Q1

REPORT INFORMATION
  Report Type: 
  Country: None (occurrence: None)
  Receive Date: 20050106
  Receipt Date: 20041230
  Transmission Date: 20050727
  Serious: Yes (Hospitalization)
  Sender: FDA-Public Use
  Company Number: 2004SE07283

PATIENT

DRUGS (1)
  1. BLOPRESS [Suspect]
     Dates: start: 20040815, end: 20040828

REACTIONS (2)
  - ASTHENIA [None]
  - RHABDOMYOLYSIS [None]
